FAERS Safety Report 7808826-9 (Version None)
Quarter: 2011Q4

REPORT INFORMATION
  Report Type: 
  Country: None (occurrence: None)
  Receive Date: 20111012
  Receipt Date: 20111004
  Transmission Date: 20120403
  Serious: Yes (Life-Threatening, Hospitalization)
  Sender: FDA-Public Use
  Company Number: PHHY2011IL67090

PATIENT
  Age: 65 Year
  Sex: Male

DRUGS (2)
  1. SANDOSTATIN LAR [Suspect]
     Indication: CARCINOID TUMOUR
     Dosage: 10 MG, EVERY 28 DAYS
     Dates: start: 20110426, end: 20110627
  2. SANDOSTATIN LAR [Suspect]
     Dosage: 10 MG EVERY 28 DAYS
     Dates: start: 20110815

REACTIONS (1)
  - CEREBROVASCULAR ACCIDENT [None]
